FAERS Safety Report 9134805 (Version 2)
Quarter: 2013Q2

REPORT INFORMATION
  Report Type: Spontaneous
  Country: FR (occurrence: FR)
  Receive Date: 20130304
  Receipt Date: 20130530
  Transmission Date: 20140414
  Serious: Yes (Hospitalization)
  Sender: FDA-Public Use
  Company Number: FR-VERTEX PHARMACEUTICALS INC.-2013-002914

PATIENT
  Age: 36 Year
  Sex: Male

DRUGS (15)
  1. KALYDECO [Suspect]
     Indication: CYSTIC FIBROSIS
     Dosage: 150 MG, BID
     Dates: start: 20120524
  2. CREON [Concomitant]
     Dosage: UNK, QD
  3. ATROVENT [Concomitant]
     Dosage: 2 DF, QD
  4. BRICANYL [Concomitant]
     Dosage: 2 DF, QD
  5. ZITHROMAX [Concomitant]
     Dosage: 1 DF, QD
  6. SERETIDE DISCUS [Concomitant]
     Dosage: 2 DF, BID
  7. VENTOLINE [Concomitant]
     Dosage: 2 DF, QID
  8. TOCO [Concomitant]
     Dosage: 2 DF, QD
  9. A 313 [Concomitant]
     Dosage: 2 DF, QD
  10. STEROGYL [Concomitant]
     Dosage: UNK, QD
  11. EFFEXOR [Concomitant]
     Dosage: 75 MG, QD
  12. DELURSAN [Concomitant]
     Dosage: 3 DF, QD
  13. INEXIUM [Concomitant]
     Dosage: 40 MG, QD
  14. AZACTAM [Concomitant]
     Dosage: 8 G, QD
  15. NEBCINE [Concomitant]
     Dosage: 500 MG, QD

REACTIONS (1)
  - Atrial fibrillation [Recovered/Resolved]
